FAERS Safety Report 4880006-9 (Version None)
Quarter: 2006Q1

REPORT INFORMATION
  Report Type: 
  Country: None (occurrence: None)
  Receive Date: 20060111
  Receipt Date: 20051006
  Transmission Date: 20060701
  Serious: No
  Sender: FDA-Public Use
  Company Number: 2005S1000209

PATIENT
  Age: 33 Year
  Weight: 147 kg

DRUGS (4)
  1. CUBICIN [Suspect]
     Indication: ABSCESS LIMB
     Dosage: 600 MG;Q24H;IV
     Route: 042
     Dates: start: 20050913, end: 20050923
  2. CUBICIN [Suspect]
     Indication: CELLULITIS
     Dosage: 600 MG;Q24H;IV
     Route: 042
     Dates: start: 20050913, end: 20050923
  3. HEPARIN [Concomitant]
  4. NORMAL SALINE [Concomitant]

REACTIONS (2)
  - BLOOD CREATINE PHOSPHOKINASE INCREASED [None]
  - PAIN IN EXTREMITY [None]
